FAERS Safety Report 11396875 (Version 8)
Quarter: 2016Q1

REPORT INFORMATION
  Report Type: Spontaneous
  Country: US (occurrence: US)
  Receive Date: 20150819
  Receipt Date: 20160104
  Transmission Date: 20160525
  Serious: No
  Sender: FDA-Public Use
  Company Number: US-ASTRAZENECA-2015SE72577

PATIENT
  Age: 18433 Day
  Sex: Female
  Weight: 140.6 kg

DRUGS (8)
  1. BYDUREON [Suspect]
     Active Substance: EXENATIDE
     Indication: TYPE 2 DIABETES MELLITUS
     Route: 058
     Dates: start: 201507
  2. IRON VTAMIN [Concomitant]
     Dosage: BID
     Route: 048
  3. GLYBURIDE. [Concomitant]
     Active Substance: GLYBURIDE
     Indication: TYPE 2 DIABETES MELLITUS
  4. ACTOS [Concomitant]
     Active Substance: PIOGLITAZONE HYDROCHLORIDE
     Indication: TYPE 2 DIABETES MELLITUS
     Dosage: AT NIGHT
  5. METFORMIN [Concomitant]
     Active Substance: METFORMIN HYDROCHLORIDE
     Indication: TYPE 2 DIABETES MELLITUS
     Dosage: 850
     Route: 048
  6. BYDUREON [Suspect]
     Active Substance: EXENATIDE
     Indication: WEIGHT DECREASED
     Route: 058
     Dates: start: 201507
  7. VITAMIN D [Concomitant]
     Active Substance: CHOLECALCIFEROL
  8. BYDUREON [Suspect]
     Active Substance: EXENATIDE
     Indication: APPETITE DISORDER
     Route: 058
     Dates: start: 201507

REACTIONS (12)
  - Hypertension [Unknown]
  - Injection site discolouration [Recovered/Resolved]
  - Injection site pain [Unknown]
  - Gastrooesophageal reflux disease [Unknown]
  - Injection site extravasation [Unknown]
  - Intentional product misuse [Unknown]
  - Injection site haemorrhage [Unknown]
  - Haemorrhage [Recovered/Resolved]
  - Blood iron decreased [Unknown]
  - Product use issue [Unknown]
  - Off label use [Unknown]
  - Injection site mass [Recovered/Resolved]

NARRATIVE: CASE EVENT DATE: 20150911
